FAERS Safety Report 10542047 (Version 1)
Quarter: 2014Q4

REPORT INFORMATION
  Report Type: Spontaneous
  Country: BR (occurrence: BR)
  Receive Date: 20141024
  Receipt Date: 20141024
  Transmission Date: 20150529
  Serious: Yes (Hospitalization)
  Sender: FDA-Public Use
  Company Number: BR-PFIZER INC-2014288698

PATIENT
  Age: 67 Year
  Sex: Male
  Weight: 57 kg

DRUGS (7)
  1. CLOPIDOGREL BISULFATE. [Concomitant]
     Active Substance: CLOPIDOGREL BISULFATE
     Dosage: 1 TABLET, DAILY
     Dates: start: 2009
  2. HIDRION [Concomitant]
     Dosage: 1 TABLET, DAILY
     Dates: start: 2009
  3. MERITOR [Concomitant]
     Active Substance: GLIMEPIRIDE\METFORMIN
     Dosage: 1 TABLET, DAILY
     Dates: start: 2009
  4. LIPITOR [Suspect]
     Active Substance: ATORVASTATIN CALCIUM
     Dosage: 1 TABLET (10 MG), DAILY
     Route: 048
     Dates: start: 2013
  5. PROPANOLOL [Concomitant]
     Active Substance: PROPRANOLOL HYDROCHLORIDE
     Dosage: 1 TABLET, 2X/DAY
     Dates: start: 2009
  6. DIOVAN [Concomitant]
     Active Substance: VALSARTAN
     Dosage: 1 TABLET, DAILY
     Dates: start: 2009
  7. AAS [Concomitant]
     Active Substance: ASPIRIN
     Dosage: 2 TABLETS, AFTER LUNCH
     Dates: start: 2009

REACTIONS (2)
  - Loss of consciousness [Recovering/Resolving]
  - Ischaemic stroke [Recovering/Resolving]

NARRATIVE: CASE EVENT DATE: 201408
